FAERS Safety Report 9099287 (Version 1)
Quarter: 2013Q1

REPORT INFORMATION
  Report Type: Spontaneous
  Country: None (occurrence: US)
  Receive Date: 20130214
  Receipt Date: 20130214
  Transmission Date: 20140127
  Serious: No
  Sender: FDA-Public Use
  Company Number: US-COVIDIEN/TYCO HEALTHCARE/MALLINCKRODT-T201300348

PATIENT
  Age: 56 Year
  Sex: Male

DRUGS (3)
  1. FENTANYL TRANSDERMAL SYSTEM [Suspect]
     Indication: ARTHRITIS
     Dosage: 25 MCG/HR Q 3 DAYS
     Route: 062
     Dates: start: 20130120
  2. ULTRAM [Concomitant]
     Indication: BREAKTHROUGH PAIN
     Dosage: 50 MG, UNK
     Route: 048
     Dates: start: 2000
  3. FENTANYL [Concomitant]
     Dosage: UNK
     Dates: start: 201208

REACTIONS (1)
  - Application site discolouration [Recovering/Resolving]
